FAERS Safety Report 9235241 (Version 3)
Quarter: 2013Q2

REPORT INFORMATION
  Report Type: Spontaneous
  Country: JP (occurrence: JP)
  Receive Date: 20130417
  Receipt Date: 20130516
  Transmission Date: 20140414
  Serious: Yes (Hospitalization, Other)
  Sender: FDA-Public Use
  Company Number: JP-PFIZER INC-2013114135

PATIENT
  Age: 73 Year
  Sex: Female

DRUGS (2)
  1. AZULFIDINE EN [Suspect]
     Dosage: UNK
  2. WARFARIN [Suspect]
     Indication: ANGINA PECTORIS
     Dosage: 2.5 MG, UNK

REACTIONS (7)
  - Petechiae [Unknown]
  - Diarrhoea [Unknown]
  - Pyrexia [Unknown]
  - Haemorrhage [Unknown]
  - Platelet count decreased [Unknown]
  - Generalised erythema [Unknown]
  - Local swelling [Unknown]
